FAERS Safety Report 21050451 (Version 1)
Quarter: 2022Q3

REPORT INFORMATION
  Report Type: Spontaneous
  Country: JM (occurrence: JM)
  Receive Date: 20220707
  Receipt Date: 20220707
  Transmission Date: 20221027
  Serious: Yes (Other)
  Sender: FDA-Public Use
  Company Number: JM-BAYER-2022A091023

PATIENT
  Sex: Female

DRUGS (1)
  1. XARELTO [Suspect]
     Active Substance: RIVAROXABAN
     Indication: Product used for unknown indication
     Route: 048

REACTIONS (4)
  - Deep vein thrombosis [Unknown]
  - Protein S deficiency [Unknown]
  - Protein C deficiency [Unknown]
  - Thrombin-antithrombin III complex decreased [Unknown]
